FAERS Safety Report 7594213-8 (Version None)
Quarter: 2011Q3

REPORT INFORMATION
  Report Type: 
  Country: None (occurrence: None)
  Receive Date: 20110706
  Receipt Date: 20110629
  Transmission Date: 20111222
  Serious: No
  Sender: FDA-Public Use
  Company Number: US-TEVA-289214USA

PATIENT
  Sex: Female

DRUGS (7)
  1. POTASSIUM [Concomitant]
  2. GLUCOSAMINE [Concomitant]
  3. EXCEDRIN                           /00214201/ [Concomitant]
  4. ROPINIROLE HYDROCHLORIDE [Concomitant]
  5. AZILECT [Suspect]
     Indication: PARKINSON'S DISEASE
     Dosage: 1 MILLIGRAM;
     Route: 048
     Dates: start: 20091001
  6. DILTIAZEM [Concomitant]
  7. HYDROCHLOROTHIAZIDE [Concomitant]

REACTIONS (1)
  - ATRIAL FIBRILLATION [None]
